FAERS Safety Report 23084640 (Version 1)
Quarter: 2023Q4

REPORT INFORMATION
  Report Type: Spontaneous
  Country: US (occurrence: US)
  Receive Date: 20231019
  Receipt Date: 20231019
  Transmission Date: 20240109
  Serious: Yes (Other)
  Sender: FDA-Public Use
  Company Number: US-AMGEN-USASP2023183199

PATIENT
  Age: 89 Year
  Sex: Male

DRUGS (1)
  1. RITUXIMAB [Suspect]
     Active Substance: RITUXIMAB
     Indication: Factor VIII deficiency
     Dosage: UNK
     Route: 065

REACTIONS (12)
  - Cardiogenic shock [Unknown]
  - Cardiomyopathy [Unknown]
  - Ischaemic hepatitis [Unknown]
  - Haemolysis [Unknown]
  - Atrial fibrillation [Unknown]
  - Thrombocytopenia [Unknown]
  - Renal failure [Unknown]
  - Localised oedema [Unknown]
  - Abdominal wall oedema [Unknown]
  - Leukocytosis [Unknown]
  - Off label use [Unknown]
  - Pleural effusion [Unknown]
